FAERS Safety Report 6572338-3 (Version None)
Quarter: 2010Q1

REPORT INFORMATION
  Report Type: 
  Country: None (occurrence: None)
  Receive Date: 20100201
  Receipt Date: 20100115
  Transmission Date: 20100710
  Serious: Yes (Hospitalization)
  Sender: FDA-Public Use
  Company Number: LMI-2010-00010

PATIENT
  Age: 55 Year
  Sex: Male
  Weight: 98.3 kg

DRUGS (16)
  1. DEFINITY [Suspect]
     Indication: CARDIAC FAILURE CONGESTIVE
     Dosage: 5.0 ML OF NORMAL SALINE DILUTED WITH AN UNKNOWN AMOUNT OF DEFINITY (2 ML), INTRAVENOUS
     Route: 042
     Dates: start: 20100108, end: 20100108
  2. DEFINITY [Suspect]
     Indication: ECHOCARDIOGRAM
     Dosage: 5.0 ML OF NORMAL SALINE DILUTED WITH AN UNKNOWN AMOUNT OF DEFINITY (2 ML), INTRAVENOUS
     Route: 042
     Dates: start: 20100108, end: 20100108
  3. ASPIRIN [Concomitant]
  4. CARDIZEM DRIP (DILTIAZEM) [Concomitant]
  5. ATIVAN [Concomitant]
  6. DUONEB [Concomitant]
  7. GLUCOPHAGE [Concomitant]
  8. POTASSIUM CHLORIDE [Concomitant]
  9. LANOXIN [Concomitant]
  10. LOVENOX [Concomitant]
  11. NOVOLOG [Concomitant]
  12. LISINOPRIL [Concomitant]
  13. TOPROL-XL [Concomitant]
  14. TUSSIONEX (BROMHEXINE) (SUSPENSION) [Concomitant]
  15. ROCEPHIN [Concomitant]
  16. ZITHROMAX [Concomitant]

REACTIONS (3)
  - PNEUMONIA [None]
  - PULMONARY OEDEMA [None]
  - RESPIRATORY ARREST [None]
